FAERS Safety Report 7500703-6 (Version None)
Quarter: 2011Q2

REPORT INFORMATION
  Report Type: 
  Country: None (occurrence: None)
  Receive Date: 20110524
  Receipt Date: 20110518
  Transmission Date: 20111010
  Serious: Yes (Other)
  Sender: FDA-Public Use
  Company Number: US-MERCK-0905USA04114

PATIENT
  Age: 53 Year
  Sex: Female

DRUGS (20)
  1. DETROL [Concomitant]
     Route: 065
     Dates: start: 20010621, end: 20050521
  2. FOSAMAX [Suspect]
     Indication: OSTEOPOROSIS
     Route: 048
     Dates: start: 20010401, end: 20060801
  3. RITALIN [Concomitant]
     Route: 065
     Dates: start: 20030523, end: 20030623
  4. PENICILLIN VK [Concomitant]
     Route: 065
     Dates: start: 20060608
  5. GABAPENTIN [Concomitant]
     Route: 065
     Dates: start: 20041104, end: 20060503
  6. FOSAMAX [Suspect]
     Route: 048
     Dates: start: 19990801, end: 20010401
  7. XANAX [Concomitant]
     Route: 065
     Dates: start: 20010622, end: 20030828
  8. DEPAKOTE [Concomitant]
     Route: 065
     Dates: start: 20030703, end: 20031206
  9. ALPRAZOLAM [Concomitant]
     Route: 065
     Dates: start: 20030915
  10. CHLORHEXIDINE GLUCONATE [Concomitant]
     Route: 065
     Dates: start: 20060608
  11. REMERON [Concomitant]
     Route: 065
     Dates: start: 20010621, end: 20030918
  12. HYDROCODONE [Concomitant]
     Route: 065
     Dates: start: 20051215
  13. FOSAMAX [Suspect]
     Route: 048
     Dates: start: 19990801, end: 20010401
  14. LAMICTAL [Concomitant]
     Route: 065
     Dates: start: 20040305, end: 20040405
  15. AMOXICILLIN [Concomitant]
     Route: 065
     Dates: start: 20051215
  16. FOSAMAX [Suspect]
     Indication: OSTEOPENIA
     Route: 048
     Dates: start: 20010401, end: 20060801
  17. NEURONTIN [Concomitant]
     Route: 065
     Dates: start: 20040405, end: 20041107
  18. ACETAMINOPHEN AND CODEINE [Concomitant]
     Route: 065
     Dates: start: 20060606, end: 20060609
  19. MEDROXYPROGESTERONE ACETATE [Concomitant]
     Route: 065
     Dates: start: 20010621, end: 20030202
  20. MIRTAZAPINE [Concomitant]
     Route: 065
     Dates: start: 20030912

REACTIONS (32)
  - ANXIETY [None]
  - SKIN LESION [None]
  - NAUSEA [None]
  - CAROTID BRUIT [None]
  - WEIGHT DECREASED [None]
  - STERNAL FRACTURE [None]
  - ADVERSE DRUG REACTION [None]
  - ANAEMIA [None]
  - DECREASED APPETITE [None]
  - TOOTH DISCOLOURATION [None]
  - OSTEONECROSIS OF JAW [None]
  - ACTINIC KERATOSIS [None]
  - TOOTH INFECTION [None]
  - ALOPECIA [None]
  - HYPERCALCAEMIA [None]
  - PERIODONTAL DISEASE [None]
  - NODULE [None]
  - ENDOMETRIAL ATROPHY [None]
  - VOMITING [None]
  - VIRAL INFECTION [None]
  - DEPRESSION [None]
  - DYSPEPSIA [None]
  - SYSTEMIC LUPUS ERYTHEMATOSUS [None]
  - ABSCESS [None]
  - TOOTH ABSCESS [None]
  - OSTEOMYELITIS [None]
  - BONE LOSS [None]
  - TREMOR [None]
  - OESOPHAGITIS [None]
  - ORAL TORUS [None]
  - GASTRITIS [None]
  - INFECTED CYST [None]
